FAERS Safety Report 21356628 (Version 2)
Quarter: 2022Q3

REPORT INFORMATION
  Report Type: Report from Study
  Country: US (occurrence: US)
  Receive Date: 20220920
  Receipt Date: 20220922
  Transmission Date: 20221026
  Serious: Yes (Hospitalization, Other)
  Sender: FDA-Public Use
  Company Number: US-PFIZER INC-PV202200065963

PATIENT
  Age: 56 Year
  Sex: Female

DRUGS (15)
  1. DEPO-MEDROL [Suspect]
     Active Substance: METHYLPREDNISOLONE ACETATE
     Dosage: UNK
  2. DOXYCYCLINE HYCLATE [Suspect]
     Active Substance: DOXYCYCLINE HYCLATE
     Dosage: UNK
  3. LIOTHYRONINE SODIUM [Suspect]
     Active Substance: LIOTHYRONINE SODIUM
     Dosage: UNK
  4. LEVOTHYROXINE SODIUM [Suspect]
     Active Substance: LEVOTHYROXINE SODIUM
     Dosage: UNK
  5. DUPIXENT [Suspect]
     Active Substance: DUPILUMAB
     Indication: Asthma
     Dosage: 600 MG
     Dates: start: 20220224
  6. DUPIXENT [Suspect]
     Active Substance: DUPILUMAB
     Dosage: 300 MG(EVERY OTHER WEEK)
     Dates: start: 20220310
  7. KETOCONAZOLE [Suspect]
     Active Substance: KETOCONAZOLE
     Indication: Asthma
     Dosage: 600 MG
     Route: 058
  8. KETOCONAZOLE [Suspect]
     Active Substance: KETOCONAZOLE
     Dosage: 300 MG (EVERY OTHER WEEK)
  9. ELIDEL [Suspect]
     Active Substance: PIMECROLIMUS
     Dosage: UNK
  10. ZOFRAN ODT [Suspect]
     Active Substance: ONDANSETRON HYDROCHLORIDE
     Dosage: UNK
  11. TRIAMCINOLONE DIACETATE [Suspect]
     Active Substance: TRIAMCINOLONE DIACETATE
     Dosage: UNK
  12. LEVALBUTEROL [Suspect]
     Active Substance: LEVALBUTEROL
  13. DIPHENHYDRAMINE HYDROCHLORIDE\GUAIFENESIN [Suspect]
     Active Substance: DIPHENHYDRAMINE HYDROCHLORIDE\GUAIFENESIN
  14. FAMOTIDINE [Concomitant]
     Active Substance: FAMOTIDINE
     Dosage: UNK
  15. LIDOCAINE [Concomitant]
     Active Substance: LIDOCAINE
     Dosage: UNK

REACTIONS (19)
  - Blister [Unknown]
  - Condition aggravated [Unknown]
  - Confusional state [Unknown]
  - Hypersensitivity [Unknown]
  - Lip swelling [Unknown]
  - Food allergy [Unknown]
  - Injection site pain [Unknown]
  - Urticaria [Unknown]
  - Rosacea [Unknown]
  - Erythema [Unknown]
  - Nausea [Unknown]
  - Abdominal pain upper [Unknown]
  - Dehydration [Unknown]
  - Muscle spasms [Unknown]
  - Cough [Unknown]
  - COVID-19 [Unknown]
  - Herpes zoster [Unknown]
  - Hypoaesthesia [Unknown]
  - Asthma [Unknown]

NARRATIVE: CASE EVENT DATE: 20220310
